FAERS Safety Report 9279961 (Version 1)
Quarter: 2013Q2

REPORT INFORMATION
  Report Type: Spontaneous
  Country: US (occurrence: US)
  Receive Date: 20130509
  Receipt Date: 20130509
  Transmission Date: 20140414
  Serious: Yes (Other)
  Sender: FDA-Public Use
  Company Number: US-ROCHE-1222096

PATIENT
  Age: 44 Year
  Sex: Male

DRUGS (1)
  1. ACTIVASE [Suspect]
     Indication: CEREBROVASCULAR ACCIDENT
     Route: 065

REACTIONS (1)
  - Aortic dissection [Not Recovered/Not Resolved]
